FAERS Safety Report 6160799-3 (Version None)
Quarter: 2009Q2

REPORT INFORMATION
  Report Type: 
  Country: None (occurrence: None)
  Receive Date: 20090420
  Receipt Date: 20090417
  Transmission Date: 20091009
  Serious: Yes (Death, Hospitalization, Other)
  Sender: FDA-Public Use
  Company Number: PHHY2009JP12159

PATIENT
  Sex: Female
  Weight: 36 kg

DRUGS (5)
  1. COMTAN [Suspect]
     Indication: DRUG EFFECT DECREASED
     Dosage: 100 MG
     Route: 048
     Dates: end: 20080622
  2. COMTAN [Suspect]
     Indication: PARKINSON'S DISEASE
     Dosage: 500 MG
     Dates: start: 20080623, end: 20080925
  3. COMTAN [Suspect]
     Dosage: 200 MG
     Dates: start: 20081003, end: 20081112
  4. LEVODOPA BENSERAZIDE HYDROCHLO [Concomitant]
     Indication: PARKINSON'S DISEASE
     Dosage: 500 MG
     Route: 048
     Dates: start: 20080623
  5. LEVODOPA BENSERAZIDE HYDROCHLO [Concomitant]
     Dosage: 200 MG
     Route: 048
     Dates: end: 20081112

REACTIONS (4)
  - DISEASE PROGRESSION [None]
  - GENERAL PHYSICAL HEALTH DETERIORATION [None]
  - INTESTINAL OBSTRUCTION [None]
  - PARKINSON'S DISEASE [None]
